FAERS Safety Report 9341137 (Version 2)
Quarter: 2013Q3

REPORT INFORMATION
  Report Type: Spontaneous
  Country: US (occurrence: US)
  Receive Date: 20130611
  Receipt Date: 20130711
  Transmission Date: 20140515
  Serious: No
  Sender: FDA-Public Use
  Company Number: US-009507513-1306USA002221

PATIENT
  Age: 63 Year
  Sex: Female

DRUGS (2)
  1. AZASITE [Suspect]
     Indication: CONJUNCTIVITIS
     Dosage: 2 GTT, BID
     Route: 047
     Dates: start: 20130522, end: 20130524
  2. AZASITE [Suspect]
     Dosage: 2 GTT, QD
     Dates: start: 20130524

REACTIONS (3)
  - Ocular hyperaemia [Not Recovered/Not Resolved]
  - Product quality issue [Unknown]
  - Drug dose omission [Unknown]
